FAERS Safety Report 8175821 (Version 3)
Quarter: 2013Q1

REPORT INFORMATION
  Report Type: Spontaneous
  Country: JP (occurrence: JP)
  Receive Date: 20111011
  Receipt Date: 20130318
  Transmission Date: 20140127
  Serious: Yes (Hospitalization, Other)
  Sender: FDA-Public Use
  Company Number: JP-PFIZER INC-2011239348

PATIENT
  Age: 65 Year
  Sex: Male
  Weight: 65 kg

DRUGS (14)
  1. LYRICA [Suspect]
     Indication: NEUROPATHY PERIPHERAL
     Dosage: 150 MG, 2X/DAY
     Route: 048
     Dates: start: 20110909, end: 20110910
  2. LYRICA [Suspect]
     Dosage: UNK
     Route: 048
     Dates: start: 20110912, end: 20110913
  3. CERCINE [Suspect]
     Indication: TINNITUS
     Dosage: 2 MG, 3X/DAY
     Route: 048
     Dates: start: 20110602
  4. DEPAS [Suspect]
     Indication: TINNITUS
     Dosage: 1.5 MG, 3X/DAY
     Route: 048
  5. ROHYPNOL [Suspect]
     Indication: INSOMNIA
     Dosage: 2 MG, 1X/DAY
     Route: 048
     Dates: start: 20110602
  6. BENZALIN [Suspect]
     Indication: INSOMNIA
     Dosage: 5 MG, 1X/DAY
     Route: 048
  7. BAYASPIRIN [Concomitant]
     Route: 048
  8. NORVASC [Concomitant]
     Route: 048
  9. METHYCOBAL [Concomitant]
     Route: 048
  10. ARTIST [Concomitant]
     Route: 048
  11. NITROPEN [Concomitant]
     Route: 060
  12. LOXONIN [Concomitant]
     Route: 048
  13. MAGMITT [Concomitant]
     Route: 048
  14. PURSENNID [Concomitant]
     Route: 048

REACTIONS (4)
  - Toxicity to various agents [Recovering/Resolving]
  - Dizziness [Recovering/Resolving]
  - Altered state of consciousness [Recovering/Resolving]
  - Asthenia [Recovering/Resolving]
